FAERS Safety Report 9111868 (Version 1)
Quarter: 2013Q1

REPORT INFORMATION
  Report Type: Spontaneous
  Country: US (occurrence: US)
  Receive Date: 20130219
  Receipt Date: 20130219
  Transmission Date: 20140127
  Serious: No
  Sender: FDA-Public Use
  Company Number: US-BRISTOL-MYERS SQUIBB COMPANY-17003138

PATIENT
  Age: 49 Year
  Sex: Female

DRUGS (1)
  1. ORENCIA [Suspect]
     Indication: RHEUMATOID ARTHRITIS
     Dosage: SKIPPED INF ON: AUG12, OCT2012.?LAST INF:06SEP12,23NOV2012.
     Route: 042
     Dates: start: 201206

REACTIONS (5)
  - Renal disorder [Unknown]
  - Nasopharyngitis [Unknown]
  - Respiratory tract congestion [Unknown]
  - Dry skin [Unknown]
  - Pain of skin [Unknown]
